FAERS Safety Report 15895555 (Version 1)
Quarter: 2019Q1

REPORT INFORMATION
  Report Type: Spontaneous
  Country: JP (occurrence: JP)
  Receive Date: 20190131
  Receipt Date: 20190131
  Transmission Date: 20190417
  Serious: Yes (Other)
  Sender: FDA-Public Use
  Company Number: JP-PFIZER INC-2019040342

PATIENT
  Age: 70 Year
  Sex: Female

DRUGS (1)
  1. WYPAX 0.5 [Suspect]
     Active Substance: LORAZEPAM
     Dosage: 3 DF, DAILY

REACTIONS (5)
  - Autonomic neuropathy [Unknown]
  - Musculoskeletal stiffness [Unknown]
  - Drug ineffective [Unknown]
  - Feeling abnormal [Not Recovered/Not Resolved]
  - Dizziness [Not Recovered/Not Resolved]
